FAERS Safety Report 15068321 (Version 2)
Quarter: 2018Q3

REPORT INFORMATION
  Report Type: Report from Study
  Country: US (occurrence: US)
  Receive Date: 20180626
  Receipt Date: 20180802
  Transmission Date: 20181010
  Serious: Yes (Hospitalization, Other)
  Sender: FDA-Public Use
  Company Number: US-UNITED THERAPEUTICS-UNT-2018-009009

PATIENT
  Sex: Male

DRUGS (2)
  1. TREPROSTINIL SODIUM (SQ) [Suspect]
     Active Substance: TREPROSTINIL SODIUM
     Indication: PULMONARY ARTERIAL HYPERTENSION
     Dosage: 0.0322 ?G/KG, CONTINUING
     Route: 058
     Dates: start: 20180302
  2. TREPROSTINIL SODIUM (SQ) [Suspect]
     Active Substance: TREPROSTINIL SODIUM
     Dosage: 0.0302 ?G/KG, CONTINUING
     Route: 058
     Dates: start: 20180314

REACTIONS (3)
  - Fluid retention [Unknown]
  - Pulmonary arterial hypertension [Unknown]
  - Cardiac failure [Unknown]

NARRATIVE: CASE EVENT DATE: 20180615
